FAERS Safety Report 7685320-X (Version None)
Quarter: 2011Q3

REPORT INFORMATION
  Report Type: 
  Country: None (occurrence: None)
  Receive Date: 20110816
  Receipt Date: 20110801
  Transmission Date: 20111222
  Serious: Yes (Death, Hospitalization)
  Sender: FDA-Public Use
  Company Number: TN-SANOFI-AVENTIS-2011SA049357

PATIENT
  Age: 63 Year
  Sex: Female

DRUGS (5)
  1. AMIODARONE HCL [Concomitant]
     Indication: ATRIAL FIBRILLATION
  2. FUROSEMIDE [Suspect]
     Indication: HYPERTENSION
     Route: 065
  3. VALSARTAN [Concomitant]
     Indication: HYPERTENSION
  4. ISOSORBIDE DINITRATE [Concomitant]
  5. FUROSEMIDE [Suspect]
     Route: 065

REACTIONS (5)
  - PANCREATITIS ACUTE [None]
  - BLOOD AMYLASE INCREASED [None]
  - CARDIAC ARREST [None]
  - ABDOMINAL PAIN [None]
  - LIPASE INCREASED [None]
